FAERS Safety Report 7128976-2 (Version None)
Quarter: 2010Q4

REPORT INFORMATION
  Report Type: 
  Country: None (occurrence: None)
  Receive Date: 20101130
  Receipt Date: 20101117
  Transmission Date: 20110411
  Serious: Yes (Hospitalization)
  Sender: FDA-Public Use
  Company Number: GB-TEVA-256625ISR

PATIENT
  Age: 63 Year
  Sex: Male
  Weight: 122.7 kg

DRUGS (5)
  1. AMLODIPINE [Suspect]
  2. ATENOLOL [Interacting]
  3. RAMIPRIL [Interacting]
  4. EXENATIDE [Interacting]
  5. IRBESARTAN [Interacting]

REACTIONS (1)
  - RENAL FAILURE ACUTE [None]
